FAERS Safety Report 22211320 (Version 1)
Quarter: 2023Q2

REPORT INFORMATION
  Report Type: Spontaneous
  Country: US (occurrence: None)
  Receive Date: 20230413
  Receipt Date: 20230413
  Transmission Date: 20230722
  Serious: Yes (Hospitalization)
  Sender: FDA-Public Use
  Company Number: None

PATIENT
  Age: 57 Year
  Sex: Male
  Weight: 133 kg

DRUGS (16)
  1. AD26.COV2.S [Suspect]
     Active Substance: AD26.COV2.S
  2. OZEMPIC [Suspect]
     Active Substance: SEMAGLUTIDE
  3. COUMADIN [Suspect]
     Active Substance: WARFARIN SODIUM
  4. TACROLIMUS [Suspect]
     Active Substance: TACROLIMUS
  5. CELLCEPT [Suspect]
     Active Substance: MYCOPHENOLATE MOFETIL
  6. WARFARIN [Concomitant]
     Active Substance: WARFARIN
  7. ASPIRIN [Concomitant]
     Active Substance: ASPIRIN
  8. LIPITOR [Concomitant]
     Active Substance: ATORVASTATIN CALCIUM
  9. VITAMIN D3 [Concomitant]
     Active Substance: CHOLECALCIFEROL
  10. BREZTRI [Concomitant]
     Active Substance: BUDESONIDE\FORMOTEROL\GLYCOPYRROLATE
  11. SENSIPAR [Concomitant]
     Active Substance: CINACALCET HYDROCHLORIDE
  12. LOPRESSOR [Concomitant]
     Active Substance: METOPROLOL TARTRATE
  13. VITAMINS [Concomitant]
     Active Substance: VITAMINS
  14. PROTONIX [Concomitant]
     Active Substance: PANTOPRAZOLE SODIUM
  15. SENNA [Suspect]
     Active Substance: SENNA LEAF\SENNOSIDES\SENNOSIDES A AND B
  16. AMBIEN [Concomitant]
     Active Substance: ZOLPIDEM TARTRATE

REACTIONS (5)
  - Acute kidney injury [None]
  - Toxicity to various agents [None]
  - Nephropathy toxic [None]
  - International normalised ratio increased [None]
  - Therapy interrupted [None]

NARRATIVE: CASE EVENT DATE: 20230323
